FAERS Safety Report 18555010 (Version 2)
Quarter: 2021Q3

REPORT INFORMATION
  Report Type: Spontaneous
  Country: CA (occurrence: CA)
  Receive Date: 20201127
  Receipt Date: 20210923
  Transmission Date: 20211014
  Serious: Yes (Hospitalization, Other)
  Sender: FDA-Public Use
  Company Number: CA-SAMSUNG BIOEPIS-SB-2020-35221

PATIENT
  Age: 81 Year
  Sex: Female
  Weight: 92 kg

DRUGS (1)
  1. INFLIXIMAB [Suspect]
     Active Substance: INFLIXIMAB
     Indication: PSORIATIC ARTHROPATHY
     Route: 042

REACTIONS (15)
  - Fall [Recovered/Resolved]
  - Oropharyngeal pain [Recovered/Resolved]
  - Urinary tract disorder [Recovered/Resolved]
  - Intentional product use issue [Recovered/Resolved]
  - Hallucination [Recovered/Resolved]
  - Pyrexia [Recovered/Resolved]
  - Inappropriate schedule of product administration [Recovered/Resolved]
  - Blood pressure fluctuation [Recovered/Resolved]
  - Thrombosis [Recovered/Resolved]
  - Head injury [Recovered/Resolved]
  - Disorientation [Recovered/Resolved]
  - Nasopharyngitis [Recovered/Resolved]
  - Heart rate irregular [Recovered/Resolved]
  - Balance disorder [Recovered/Resolved]
  - Off label use [Recovered/Resolved]
